FAERS Safety Report 7329692-4 (Version None)
Quarter: 2011Q1

REPORT INFORMATION
  Report Type: 
  Country: None (occurrence: None)
  Receive Date: 20110303
  Receipt Date: 20110301
  Transmission Date: 20110831
  Serious: Yes (Other)
  Sender: FDA-Public Use
  Company Number: US-BAYER-2011-002177

PATIENT
  Sex: Female

DRUGS (1)
  1. MIRENA [Suspect]
     Indication: PRODUCT USED FOR UNKNOWN INDICATION
     Dosage: 20 ?G, CONT
     Dates: start: 20100525

REACTIONS (5)
  - DEVICE DISLOCATION [None]
  - GENITAL HAEMORRHAGE [None]
  - FOETAL HEART RATE ABNORMAL [None]
  - PREGNANCY TEST POSITIVE [None]
  - DEVICE EXPULSION [None]
